FAERS Safety Report 23297912 (Version 1)
Quarter: 2023Q4

REPORT INFORMATION
  Report Type: Spontaneous
  Country: PT (occurrence: PT)
  Receive Date: 20231214
  Receipt Date: 20231214
  Transmission Date: 20240110
  Serious: Yes (Disabling)
  Sender: FDA-Public Use
  Company Number: None

PATIENT
  Age: 62 Year
  Weight: 42 kg

DRUGS (5)
  1. SUNITINIB [Suspect]
     Active Substance: SUNITINIB
     Indication: Renal cell carcinoma
     Dosage: 50 MG DAILY
     Route: 048
     Dates: start: 20230922, end: 20231002
  2. MORPHINE HYDROCHLORIDE [Concomitant]
     Active Substance: MORPHINE HYDROCHLORIDE
     Indication: Product used for unknown indication
     Route: 048
  3. TAMSULOSIN HYDROCHLORIDE [Concomitant]
     Active Substance: TAMSULOSIN HYDROCHLORIDE
  4. PANTOPRAZOLE SODIUM [Concomitant]
     Active Substance: PANTOPRAZOLE SODIUM
  5. FENTANYL [Concomitant]
     Active Substance: FENTANYL\FENTANYL CITRATE
     Dosage: FENTANYL TRANSDERMAL SYSTEM 25 A?G/H
     Route: 062

REACTIONS (4)
  - Bedridden [Recovered/Resolved]
  - Arthralgia [Recovered/Resolved]
  - Skin lesion [Recovered/Resolved]
  - Asthenia [Recovered/Resolved]

NARRATIVE: CASE EVENT DATE: 20230925
